FAERS Safety Report 7190245-2 (Version None)
Quarter: 2010Q4

REPORT INFORMATION
  Report Type: 
  Country: None (occurrence: None)
  Receive Date: 20101223
  Receipt Date: 20101208
  Transmission Date: 20110411
  Serious: Yes (Hospitalization, Other)
  Sender: FDA-Public Use
  Company Number: PHHY2010US72825

PATIENT
  Sex: Female

DRUGS (1)
  1. EXJADE [Suspect]
     Dosage: 1000 MG, QD
     Route: 048

REACTIONS (7)
  - CEREBROVASCULAR ACCIDENT [None]
  - DIARRHOEA [None]
  - FLATULENCE [None]
  - PAIN [None]
  - PLATELET COUNT DECREASED [None]
  - SPLENOMEGALY [None]
  - VOMITING [None]
